FAERS Safety Report 10775668 (Version 3)
Quarter: 2015Q2

REPORT INFORMATION
  Report Type: Spontaneous
  Country: US (occurrence: US)
  Receive Date: 20150209
  Receipt Date: 20150508
  Transmission Date: 20150821
  Serious: Yes (Congenital Anomaly, Other)
  Sender: FDA-Public Use
  Company Number: US-APOTEX-2015AP006329

PATIENT
  Age: 0 Day
  Sex: Male

DRUGS (3)
  1. PAXIL [Suspect]
     Active Substance: PAROXETINE HYDROCHLORIDE
     Indication: ANGER
  2. PAXIL [Suspect]
     Active Substance: PAROXETINE HYDROCHLORIDE
     Indication: BIPOLAR DISORDER
     Dosage: 10 MG, UNK
  3. PAXIL [Suspect]
     Active Substance: PAROXETINE HYDROCHLORIDE
     Indication: DEPRESSION
     Dosage: 20 MG, UNK
     Route: 064
     Dates: start: 20040323, end: 200410

REACTIONS (3)
  - Talipes [Recovering/Resolving]
  - Foetal exposure during pregnancy [Unknown]
  - Hernia congenital [Unknown]

NARRATIVE: CASE EVENT DATE: 20041123
